FAERS Safety Report 10204367 (Version 2)
Quarter: 2014Q2

REPORT INFORMATION
  Report Type: Spontaneous
  Country: US (occurrence: US)
  Receive Date: 20140529
  Receipt Date: 20140529
  Transmission Date: 20141212
  Serious: No
  Sender: FDA-Public Use
  Company Number: US-MYLANLABS-2013S1027671

PATIENT
  Age: 72 Year
  Sex: Female

DRUGS (7)
  1. AMITRIPTYLINE HYDROCHLORIDE TABLETS, USP [Suspect]
     Indication: INSOMNIA
     Route: 048
  2. AMITRIPTYLINE HYDROCHLORIDE TABLETS, USP [Suspect]
     Indication: OFF LABEL USE
     Route: 048
  3. THYROID [Concomitant]
  4. PRILOSEC [Concomitant]
     Dosage: CONTAINS YELLOW DYE
  5. IRON [Concomitant]
     Dosage: CONTAINS BLUE DYE
  6. MELOXICAM [Concomitant]
  7. ZOCOR [Concomitant]
     Dosage: CONTAINS RED DYE

REACTIONS (3)
  - Drug ineffective for unapproved indication [Not Recovered/Not Resolved]
  - Insomnia [Not Recovered/Not Resolved]
  - Reaction to drug excipients [Not Recovered/Not Resolved]
